FAERS Safety Report 23759528 (Version 1)
Quarter: 2024Q2

REPORT INFORMATION
  Report Type: Spontaneous
  Country: US (occurrence: None)
  Receive Date: 20240418
  Receipt Date: 20240418
  Transmission Date: 20240715
  Serious: No
  Sender: FDA-Public Use
  Company Number: US-ROCHE-3456114

PATIENT
  Sex: Male

DRUGS (1)
  1. ESBRIET [Suspect]
     Active Substance: PIRFENIDONE
     Indication: Pulmonary fibrosis
     Dosage: TAKE 1 CAPSULE BY MOUTH 3 TIMES A DAY FOR 7 DAYS THEN TAKE 2 CAPSULES BY MOUTH 3 TIMES A DAY FOR 7 D
     Route: 048
     Dates: start: 202310

REACTIONS (2)
  - Abdominal pain upper [Unknown]
  - Dyspepsia [Unknown]
